FAERS Safety Report 6807625-4 (Version None)
Quarter: 2010Q2

REPORT INFORMATION
  Report Type: 
  Country: None (occurrence: None)
  Receive Date: 20100629
  Receipt Date: 20090704
  Transmission Date: 20101027
  Serious: No
  Sender: FDA-Public Use
  Company Number: US-PFIZER INC-2008083628

PATIENT
  Sex: Female
  Weight: 60.9 kg

DRUGS (6)
  1. TIKOSYN [Suspect]
     Indication: ATRIAL FIBRILLATION
     Dosage: 500 UG, 2X/DAY
     Route: 048
     Dates: start: 20080801
  2. LIPITOR [Suspect]
     Dosage: 40 MG, UNK
     Route: 048
  3. WARFARIN [Concomitant]
     Route: 048
  4. METOPROLOL [Concomitant]
     Route: 048
  5. TOPROL-XL [Concomitant]
  6. ACETYLSALICYLIC ACID [Concomitant]

REACTIONS (3)
  - DIZZINESS [None]
  - FEELING HOT [None]
  - HYPERHIDROSIS [None]
